FAERS Safety Report 21666947 (Version 2)
Quarter: 2022Q4

REPORT INFORMATION
  Report Type: Spontaneous
  Country: CN (occurrence: CN)
  Receive Date: 20221201
  Receipt Date: 20221207
  Transmission Date: 20230112
  Serious: Yes (Other)
  Sender: FDA-Public Use
  Company Number: CN-002147023-NVSC2022CN276028

PATIENT
  Age: 65 Year
  Sex: Female

DRUGS (4)
  1. TRILEPTAL [Suspect]
     Active Substance: OXCARBAZEPINE
     Indication: Product used for unknown indication
     Dosage: 0.5 DOSAGE FORM, QD, (HALF A TABLET EVERY NIGHT)
     Route: 048
  2. TRILEPTAL [Suspect]
     Active Substance: OXCARBAZEPINE
     Dosage: 0.5 DOSAGE FORM, QD, (HALF A TABLET EVERY NIGHT)
     Route: 048
  3. TRILEPTAL [Suspect]
     Active Substance: OXCARBAZEPINE
     Dosage: 0.5 DOSAGE FORM, BID, (HALF A TABLET EVERY  MORNING, HALF A TABLET EVERY NIGHT)
     Route: 048
  4. TRILEPTAL [Suspect]
     Active Substance: OXCARBAZEPINE
     Dosage: 0.5 DOSAGE FORM, BID, (HALF A TABLET EVERY  MORNING, HALF A TABLET EVERY NIGHT)
     Route: 048

REACTIONS (6)
  - Loss of consciousness [Unknown]
  - Head injury [Unknown]
  - Traumatic haemorrhage [Unknown]
  - Incorrect dose administered [Unknown]
  - Wrong technique in product usage process [Unknown]
  - Counterfeit product administered [Unknown]
